FAERS Safety Report 17671751 (Version 1)
Quarter: 2020Q2

REPORT INFORMATION
  Report Type: Report from Study
  Country: None (occurrence: US)
  Receive Date: 20200415
  Receipt Date: 20200415
  Transmission Date: 20200713
  Serious: Yes (Hospitalization)
  Sender: FDA-Public Use
  Company Number: US-ABBVIE-19K-163-3177271-00

PATIENT
  Age: 37 Year
  Sex: Female

DRUGS (2)
  1. HUMIRA [Suspect]
     Active Substance: ADALIMUMAB
     Route: 058
     Dates: start: 201912
  2. HUMIRA [Suspect]
     Active Substance: ADALIMUMAB
     Indication: COLITIS ULCERATIVE
     Route: 058
     Dates: end: 201909

REACTIONS (10)
  - Colitis ulcerative [Recovering/Resolving]
  - Malaise [Unknown]
  - Loss of personal independence in daily activities [Unknown]
  - Inflammation [Recovering/Resolving]
  - Fistula [Recovering/Resolving]
  - Abdominal discomfort [Unknown]
  - Vomiting [Recovered/Resolved]
  - Thermal burn [Recovered/Resolved]
  - Colitis ulcerative [Not Recovered/Not Resolved]
  - Contusion [Recovered/Resolved]

NARRATIVE: CASE EVENT DATE: 2019
